FAERS Safety Report 8335082-8 (Version None)
Quarter: 2012Q2

REPORT INFORMATION
  Report Type: 
  Country: None (occurrence: None)
  Receive Date: 20120503
  Receipt Date: 20120424
  Transmission Date: 20120825
  Serious: Yes (Other)
  Sender: FDA-Public Use
  Company Number: GB-JNJFOC-20120412494

PATIENT
  Age: 65 Year

DRUGS (5)
  1. REMICADE [Suspect]
     Indication: COLITIS ULCERATIVE
     Route: 042
     Dates: start: 20120201
  2. MERCAPTOPURINE [Concomitant]
  3. STEROIDS NOS [Concomitant]
  4. REMICADE [Suspect]
     Route: 042
     Dates: start: 20120301
  5. REMICADE [Suspect]
     Dosage: 3 DOSES IN 2007
     Route: 042
     Dates: start: 20070101

REACTIONS (3)
  - COLECTOMY [None]
  - DIFFUSE LARGE B-CELL LYMPHOMA [None]
  - INTESTINAL PERFORATION [None]
